FAERS Safety Report 9886098 (Version 1)
Quarter: 2014Q1

REPORT INFORMATION
  Report Type: Spontaneous
  Country: GB (occurrence: GB)
  Receive Date: 20140210
  Receipt Date: 20140210
  Transmission Date: 20141002
  Serious: Yes (Other)
  Sender: FDA-Public Use
  Company Number: GB-JNJFOC-20140204924

PATIENT
  Age: 73 Year
  Sex: Male

DRUGS (8)
  1. XARELTO [Suspect]
     Indication: CEREBROVASCULAR ACCIDENT PROPHYLAXIS
     Route: 048
     Dates: start: 20131122, end: 20140110
  2. XARELTO [Suspect]
     Indication: ATRIAL FIBRILLATION
     Route: 048
     Dates: start: 20131122, end: 20140110
  3. ADIZEM [Concomitant]
     Route: 065
  4. FLUTICASONE [Concomitant]
     Route: 065
  5. OMEPRAZOLE [Concomitant]
     Route: 065
  6. SIMVASTATIN [Concomitant]
     Route: 065
  7. SPIRONOLACTONE [Concomitant]
     Route: 065
  8. WARFARIN [Concomitant]
     Route: 065

REACTIONS (3)
  - Arthralgia [Recovering/Resolving]
  - Myalgia [Recovering/Resolving]
  - Musculoskeletal stiffness [Recovering/Resolving]
